FAERS Safety Report 20170045 (Version 1)
Quarter: 2021Q4

REPORT INFORMATION
  Report Type: Spontaneous
  Country: IT (occurrence: IT)
  Receive Date: 20211210
  Receipt Date: 20211210
  Transmission Date: 20220303
  Serious: Yes (Other)
  Sender: FDA-Public Use
  Company Number: IT-PFIZER INC-202101685678

PATIENT
  Age: 80 Year
  Sex: Female

DRUGS (10)
  1. AXITINIB [Suspect]
     Active Substance: AXITINIB
     Indication: Renal cell carcinoma
     Dosage: 7 MG, DAILY
     Route: 048
     Dates: start: 20210414, end: 20210526
  2. AXITINIB [Suspect]
     Active Substance: AXITINIB
     Dosage: 7 MG, DAILY
     Route: 048
     Dates: start: 20210505
  3. AXITINIB [Suspect]
     Active Substance: AXITINIB
     Dosage: 10 MG, DAILY
     Route: 048
     Dates: start: 20210526
  4. AXITINIB [Suspect]
     Active Substance: AXITINIB
     Dosage: 10 MG, DAILY
     Route: 048
     Dates: start: 20210603
  5. AXITINIB [Suspect]
     Active Substance: AXITINIB
     Dosage: 7 MG, DAILY
     Route: 048
     Dates: start: 20210526, end: 20210713
  6. AXITINIB [Suspect]
     Active Substance: AXITINIB
     Dosage: 5 MG
     Dates: start: 20210804
  7. KEYTRUDA [Suspect]
     Active Substance: PEMBROLIZUMAB
     Indication: Renal cell carcinoma stage IV
     Dosage: 200 MG Q3W
     Route: 042
     Dates: start: 20210414, end: 20210414
  8. KEYTRUDA [Suspect]
     Active Substance: PEMBROLIZUMAB
     Dosage: 200 MG Q3W
     Route: 042
     Dates: start: 20210505, end: 20210505
  9. KEYTRUDA [Suspect]
     Active Substance: PEMBROLIZUMAB
     Dosage: 200 MG Q3W
     Route: 042
     Dates: start: 20210526, end: 20210526
  10. KEYTRUDA [Suspect]
     Active Substance: PEMBROLIZUMAB
     Dosage: 200 MG Q3W
     Route: 042
     Dates: start: 20210603, end: 20210713

REACTIONS (1)
  - Hypertransaminasaemia [Unknown]

NARRATIVE: CASE EVENT DATE: 20210713
